FAERS Safety Report 5909222-1 (Version None)
Quarter: 2008Q4

REPORT INFORMATION
  Report Type: 
  Country: None (occurrence: None)
  Receive Date: 20081006
  Receipt Date: 20080930
  Transmission Date: 20090506
  Serious: Yes (Hospitalization)
  Sender: FDA-Public Use
  Company Number: PHHY2008IT23340

PATIENT

DRUGS (2)
  1. TORECAN [Suspect]
     Indication: VERTIGO
     Dosage: 13 MG, DAILY
     Route: 048
     Dates: start: 20080919, end: 20080920
  2. LEVOPRAID [Suspect]
     Indication: VOMITING
     Dosage: 25MG/2ML
     Route: 030
     Dates: start: 20080919, end: 20080920

REACTIONS (4)
  - EXTRAPYRAMIDAL DISORDER [None]
  - TARDIVE DYSKINESIA [None]
  - TREMOR [None]
  - VERTIGO [None]
